FAERS Safety Report 5692120-9 (Version None)
Quarter: 2008Q1

REPORT INFORMATION
  Report Type: 
  Country: None (occurrence: None)
  Receive Date: 20080331
  Receipt Date: 20080314
  Transmission Date: 20080703
  Serious: Yes (Other)
  Sender: FDA-Public Use
  Company Number: S08-NOR-01143-01

PATIENT
  Age: 27 Year
  Sex: Female

DRUGS (3)
  1. ESCITALOPRAM [Suspect]
     Indication: DEPRESSION
     Dosage: 10 MG QD PO
     Route: 048
     Dates: start: 20050104, end: 20050124
  2. IMOVANE (ZOPICLONE) [Concomitant]
  3. TRIPHASIL-21 [Concomitant]

REACTIONS (7)
  - ANXIETY [None]
  - CHRONIC FATIGUE SYNDROME [None]
  - DEPRESSION [None]
  - DRUG INTOLERANCE [None]
  - HALLUCINATION [None]
  - SEROTONIN SYNDROME [None]
  - SOCIAL PHOBIA [None]
